FAERS Safety Report 6502108-3 (Version None)
Quarter: 2009Q4

REPORT INFORMATION
  Report Type: 
  Country: None (occurrence: None)
  Receive Date: 20091216
  Receipt Date: 20091204
  Transmission Date: 20100525
  Serious: Yes (Hospitalization)
  Sender: FDA-Public Use
  Company Number: NL-GENENTECH-294758

PATIENT
  Sex: Male
  Weight: 68 kg

DRUGS (11)
  1. RITUXIMAB [Suspect]
     Indication: DIFFUSE LARGE B-CELL LYMPHOMA
     Dosage: 700 MG, QD
     Route: 042
     Dates: start: 20090914
  2. CYCLOPHOSPHAMIDE [Suspect]
     Indication: DIFFUSE LARGE B-CELL LYMPHOMA
     Dosage: 1425 MG, QD
     Route: 042
     Dates: start: 20090914
  3. PREDNISONE [Suspect]
     Indication: DIFFUSE LARGE B-CELL LYMPHOMA
     Dosage: 100 MG, QD
     Route: 048
     Dates: start: 20090914
  4. DOXORUBICIN HCL [Suspect]
     Indication: DIFFUSE LARGE B-CELL LYMPHOMA
     Dosage: 95 MG, QD
     Route: 042
     Dates: start: 20090914
  5. VINCRISTINE [Suspect]
     Indication: DIFFUSE LARGE B-CELL LYMPHOMA
     Dosage: 2 MG, QD
     Route: 042
     Dates: start: 20090914
  6. NEUPOGEN [Suspect]
     Indication: DIFFUSE LARGE B-CELL LYMPHOMA
     Dosage: 6 MG, QD
     Route: 058
     Dates: start: 20090917
  7. VALACYCLOVIR HCL [Concomitant]
     Indication: PROPHYLAXIS
     Dosage: UNK
     Route: 048
     Dates: start: 20090929
  8. COTRIM [Concomitant]
     Indication: PROPHYLAXIS
     Dosage: UNK
     Route: 048
     Dates: start: 20090924
  9. TAMSULOSIN [Concomitant]
     Indication: BENIGN PROSTATIC HYPERPLASIA
     Dosage: UNK
     Route: 048
     Dates: start: 20090918
  10. ESOMEPRAZOLE [Concomitant]
     Indication: DYSPEPSIA
     Dosage: UNK
     Route: 048
     Dates: start: 20090914
  11. FOLIUMZUUR [Concomitant]
     Indication: MEDICAL DIET
     Dosage: UNK
     Route: 048
     Dates: start: 20090901

REACTIONS (1)
  - PULMONARY EMBOLISM [None]
